FAERS Safety Report 6848322-9 (Version None)
Quarter: 2010Q3

REPORT INFORMATION
  Report Type: 
  Country: None (occurrence: None)
  Receive Date: 20100716
  Receipt Date: 20100705
  Transmission Date: 20110219
  Serious: Yes (Hospitalization)
  Sender: FDA-Public Use
  Company Number: AT-ROCHE-713535

PATIENT
  Sex: Male
  Weight: 86 kg

DRUGS (20)
  1. ROACTEMRA [Suspect]
     Indication: STILL'S DISEASE ADULT ONSET
     Route: 042
     Dates: start: 20080901
  2. ROACTEMRA [Suspect]
     Route: 042
  3. PANTOPRAZOLE [Concomitant]
  4. ULSAL [Concomitant]
  5. VFEND [Concomitant]
  6. NEURONTIN [Concomitant]
  7. KOMBI-KALZ [Concomitant]
  8. CONCOR [Concomitant]
  9. SPIRONO [Concomitant]
  10. SIMVASTATIN [Concomitant]
  11. APREDNISLON [Concomitant]
  12. LODOTRA [Concomitant]
  13. CELLCEPT [Concomitant]
  14. ALNA [Concomitant]
     Dosage: DRUG: ALNA RET
  15. ASPIRIN [Concomitant]
  16. TEMGESIC [Concomitant]
  17. MAGNOSOLV [Concomitant]
  18. DOMINAL [Concomitant]
     Dosage: DRUG: DOMIAL
  19. DURAGESIC-100 [Concomitant]
     Dosage: DOSE: 25 UG/ 72H
  20. DOLPASSE [Concomitant]

REACTIONS (1)
  - ALVEOLITIS [None]
